FAERS Safety Report 20213322 (Version 1)
Quarter: 2021Q4

REPORT INFORMATION
  Report Type: Spontaneous
  Country: CN (occurrence: CN)
  Receive Date: 20211221
  Receipt Date: 20211221
  Transmission Date: 20220303
  Serious: Yes (Hospitalization)
  Sender: FDA-Public Use
  Company Number: CN-PFIZER INC-202101760700

PATIENT
  Age: 31 Year
  Sex: Female
  Weight: 56 kg

DRUGS (2)
  1. MEDROL [Suspect]
     Active Substance: METHYLPREDNISOLONE
     Indication: Still^s disease
     Dosage: 24 MG, 2X/DAY
     Route: 048
     Dates: start: 20210508, end: 20210515
  2. HYDROXYCHLOROQUINE SULFATE [Suspect]
     Active Substance: HYDROXYCHLOROQUINE SULFATE
     Indication: Still^s disease
     Dosage: 0.2 G, 1X/DAY
     Route: 048
     Dates: start: 20210417, end: 20210515

REACTIONS (6)
  - Hepatic function abnormal [Unknown]
  - Asthenia [Unknown]
  - Decreased appetite [Unknown]
  - Myalgia [Unknown]
  - Dizziness [Unknown]
  - Off label use [Unknown]

NARRATIVE: CASE EVENT DATE: 20210512
